FAERS Safety Report 8381613 (Version 5)
Quarter: 2013Q2

REPORT INFORMATION
  Report Type: Spontaneous
  Country: US (occurrence: US)
  Receive Date: 20120131
  Receipt Date: 20130429
  Transmission Date: 20140414
  Serious: Yes (Hospitalization, Disabling, Other)
  Sender: FDA-Public Use
  Company Number: US-009507513-1201USA03929

PATIENT
  Sex: Female
  Weight: 68.27 kg

DRUGS (5)
  1. FOSAMAX [Suspect]
     Indication: OSTEOPENIA
     Dosage: 70 MG, QW
     Route: 048
     Dates: start: 2002, end: 2008
  2. FOSAMAX [Suspect]
     Indication: OSTEOPOROSIS
  3. VITAMINS (UNSPECIFIED) [Concomitant]
     Dosage: UNK
     Dates: start: 2002
  4. CALCIUM (UNSPECIFIED) [Concomitant]
     Dosage: UNK
     Dates: start: 2002
  5. VITAMIN D (UNSPECIFIED) [Concomitant]
     Dosage: UNK
     Dates: start: 2002

REACTIONS (35)
  - Femur fracture [Recovered/Resolved]
  - Intramedullary rod insertion [Recovered/Resolved]
  - Lip squamous cell carcinoma [Unknown]
  - Basal cell carcinoma [Unknown]
  - Hyperlipidaemia [Unknown]
  - Haematoma [Unknown]
  - Haemorrhagic anaemia [Unknown]
  - Fall [Unknown]
  - Presyncope [Recovered/Resolved]
  - Dehydration [Recovered/Resolved]
  - Syncope [Recovered/Resolved]
  - Postoperative fever [Unknown]
  - Chondromalacia [Unknown]
  - Patellofemoral pain syndrome [Unknown]
  - Chronic obstructive pulmonary disease [Unknown]
  - Compression fracture [Unknown]
  - Arthropathy [Unknown]
  - Actinic keratosis [Unknown]
  - Seborrhoeic keratosis [Unknown]
  - Large intestine polyp [Unknown]
  - Diverticulum [Unknown]
  - Haemorrhoids [Unknown]
  - Fall [Unknown]
  - Muscle strain [Unknown]
  - Cataract operation [Unknown]
  - Ear operation [Unknown]
  - Fatigue [Unknown]
  - Tremor [Unknown]
  - Depression [Unknown]
  - Anxiety [Unknown]
  - Insomnia [Unknown]
  - Actinic keratosis [Unknown]
  - Vomiting [Unknown]
  - Arthralgia [Not Recovered/Not Resolved]
  - Arthralgia [Unknown]
